FAERS Safety Report 7474300-5 (Version None)
Quarter: 2011Q2

REPORT INFORMATION
  Report Type: 
  Country: None (occurrence: None)
  Receive Date: 20110511
  Receipt Date: 20110504
  Transmission Date: 20111010
  Serious: Yes (Other)
  Sender: FDA-Public Use
  Company Number: US-AMGEN-USASP2011020999

PATIENT
  Age: 91 Year
  Sex: Female
  Weight: 53.787 kg

DRUGS (2)
  1. NPLATE [Suspect]
     Indication: IDIOPATHIC THROMBOCYTOPENIC PURPURA
     Dosage: 0.28 A?G/KG, UNK
     Dates: start: 20100701, end: 20101117
  2. CORTICOSTEROIDS [Concomitant]

REACTIONS (1)
  - HAEMATOLOGICAL MALIGNANCY [None]
